FAERS Safety Report 12508003 (Version 1)
Quarter: 2016Q2

REPORT INFORMATION
  Report Type: Spontaneous
  Country: US (occurrence: None)
  Receive Date: 20160628
  Receipt Date: 20160628
  Transmission Date: 20160815
  Serious: Yes (Hospitalization)
  Sender: FDA-Public Use
  Company Number: None

PATIENT
  Age: 62 Year
  Sex: Male
  Weight: 119 kg

DRUGS (43)
  1. ACETAMINOPHEN. [Concomitant]
     Active Substance: ACETAMINOPHEN
  2. HYDROCORTISONE. [Concomitant]
     Active Substance: HYDROCORTISONE
  3. SIMVASTATIN. [Concomitant]
     Active Substance: SIMVASTATIN
  4. LISINOPRIL. [Concomitant]
     Active Substance: LISINOPRIL
  5. FENTANYL. [Concomitant]
     Active Substance: FENTANYL
  6. METOPROLOL. [Concomitant]
     Active Substance: METOPROLOL
  7. NYSTATIN. [Concomitant]
     Active Substance: NYSTATIN
  8. CEFEPIME [Concomitant]
     Active Substance: CEFEPIME HYDROCHLORIDE
  9. ATORVASTATIN [Concomitant]
     Active Substance: ATORVASTATIN
  10. TRAMADOL. [Concomitant]
     Active Substance: TRAMADOL
  11. AQUAPHOR [Concomitant]
     Active Substance: PETROLATUM
  12. CALCITRIOL. [Concomitant]
     Active Substance: CALCITRIOL
  13. EUCERIN [Concomitant]
     Active Substance: ENSULIZOLE\EUCERIN\OCTINOXATE\OCTISALATE\TITANIUM DIOXIDE\ZINC OXIDE
  14. MICONAZOLE. [Concomitant]
     Active Substance: MICONAZOLE
  15. ZOLPIDEM [Concomitant]
     Active Substance: ZOLPIDEM\ZOLPIDEM TARTRATE
  16. ALLOPURINOL. [Concomitant]
     Active Substance: ALLOPURINOL
  17. HYDRALAZINE [Concomitant]
     Active Substance: HYDRALAZINE HYDROCHLORIDE
  18. FLORASTOR [Concomitant]
     Active Substance: SACCHAROMYCES CEREVISIAE
  19. DIPHENHYDRAMINE. [Concomitant]
     Active Substance: DIPHENHYDRAMINE
  20. DOXYCYCLINE. [Concomitant]
     Active Substance: DOXYCYCLINE
  21. ENOXAPARIN [Concomitant]
     Active Substance: ENOXAPARIN
  22. FUROSEMIDE. [Concomitant]
     Active Substance: FUROSEMIDE
  23. ROPINIROLE. [Concomitant]
     Active Substance: ROPINIROLE
  24. ARTIFICIAL TEARS [Concomitant]
     Active Substance: GLYCERIN\HYPROMELLOSES\POLYETHYLENE GLYCOL 400
  25. FERROUS SULFATE. [Concomitant]
     Active Substance: FERROUS SULFATE
  26. SENNA [Concomitant]
     Active Substance: SENNA LEAF\SENNOSIDES\SENNOSIDES A AND B
  27. ASPIRIN. [Concomitant]
     Active Substance: ASPIRIN
  28. POTASSIUM [Concomitant]
     Active Substance: POTASSIUM
  29. CONCERTA [Concomitant]
     Active Substance: METHYLPHENIDATE HYDROCHLORIDE
  30. CHOLECALCIFEROL [Concomitant]
     Active Substance: CHOLECALCIFEROL
  31. ENOXAPARIN [Suspect]
     Active Substance: ENOXAPARIN
     Indication: DEEP VEIN THROMBOSIS
     Route: 058
  32. MUPIROCIN. [Concomitant]
     Active Substance: MUPIROCIN
  33. MAGNESIUM OXIDE. [Concomitant]
     Active Substance: MAGNESIUM OXIDE
  34. OMEPRAZOLE. [Concomitant]
     Active Substance: OMEPRAZOLE
  35. MULTIVITAMIN [Concomitant]
     Active Substance: VITAMINS
  36. BISACODYL. [Concomitant]
     Active Substance: BISACODYL
  37. RIVAROXABAN [Concomitant]
     Active Substance: RIVAROXABAN
  38. OMEGA [Concomitant]
     Active Substance: CONVALLARIA MAJALIS\CRATAEGUS LAEVIGATA LEAF\PROXYPHYLLINE
  39. MODAFINIL. [Concomitant]
     Active Substance: MODAFINIL
  40. GABAPENTIN. [Concomitant]
     Active Substance: GABAPENTIN
  41. SELENIUM SULF-PYRITHIONE-UREA [Concomitant]
  42. METOLAZONE. [Concomitant]
     Active Substance: METOLAZONE
  43. PRAMIPEXOLE. [Concomitant]
     Active Substance: PRAMIPEXOLE

REACTIONS (2)
  - No therapeutic response [None]
  - Intra-abdominal haematoma [None]

NARRATIVE: CASE EVENT DATE: 20160420
